FAERS Safety Report 12596552 (Version 2)
Quarter: 2016Q3

REPORT INFORMATION
  Report Type: Spontaneous
  Country: DE (occurrence: DE)
  Receive Date: 20160726
  Receipt Date: 20160830
  Transmission Date: 20161109
  Serious: Yes (Death)
  Sender: FDA-Public Use
  Company Number: DE-ROCHE-1800293

PATIENT
  Age: 46 Year
  Sex: Female
  Weight: 70.8 kg

DRUGS (2)
  1. KADCYLA [Suspect]
     Active Substance: ADO-TRASTUZUMAB EMTANSINE
     Indication: BREAST CANCER METASTATIC
     Dosage: THERAPY START DATE: 28/JUL/2015?LAST DOSE PRIOR TO FATAL EVENT WAS GIVEN ON 19/JUL/2016
     Route: 042
  2. ZOFRAN [Concomitant]
     Active Substance: ONDANSETRON HYDROCHLORIDE
     Indication: NAUSEA
     Dosage: START DATE: 19/JUL/2016?STOP DATE: 23/JUL/2016
     Route: 048
     Dates: end: 20160723

REACTIONS (2)
  - Fatigue [Not Recovered/Not Resolved]
  - Pulmonary embolism [Fatal]

NARRATIVE: CASE EVENT DATE: 20160724
